FAERS Safety Report 23938102 (Version 1)
Quarter: 2024Q2

REPORT INFORMATION
  Report Type: Spontaneous
  Country: IN (occurrence: IN)
  Receive Date: 20240604
  Receipt Date: 20240604
  Transmission Date: 20240715
  Serious: Yes (Hospitalization, Other)
  Sender: FDA-Public Use
  Company Number: IN-MYLANLABS-2024M1049907

PATIENT
  Age: 60 Year
  Sex: Female

DRUGS (1)
  1. METHOTREXATE [Suspect]
     Active Substance: METHOTREXATE
     Indication: Rheumatoid arthritis
     Dosage: 15 MILLIGRAM, QD (5 DAYS)
     Route: 065

REACTIONS (5)
  - Toxicity to various agents [Unknown]
  - Hyperbilirubinaemia [Unknown]
  - Bicytopenia [Unknown]
  - Skin erosion [Unknown]
  - Mucosal inflammation [Unknown]
